FAERS Safety Report 17277604 (Version 3)
Quarter: 2020Q1

REPORT INFORMATION
  Report Type: Spontaneous
  Country: US (occurrence: US)
  Receive Date: 20200116
  Receipt Date: 20200219
  Transmission Date: 20200409
  Serious: Yes (Other)
  Sender: FDA-Public Use
  Company Number: US-GLENMARK PHARMACEUTICALS-2020GMK045397

PATIENT

DRUGS (1)
  1. RANITIDINE TABLETS USP, 300 MG [Suspect]
     Active Substance: RANITIDINE HYDROCHLORIDE
     Indication: GASTROOESOPHAGEAL REFLUX DISEASE
     Dosage: 300 MG, OD; START DATE: 7 YEARS AGO
     Route: 048
     Dates: end: 201912

REACTIONS (3)
  - Invasive ductal breast carcinoma [Not Recovered/Not Resolved]
  - Lobular breast carcinoma in situ [Not Recovered/Not Resolved]
  - Recalled product administered [Unknown]

NARRATIVE: CASE EVENT DATE: 201904
